FAERS Safety Report 18164349 (Version 2)
Quarter: 2020Q3

REPORT INFORMATION
  Report Type: Spontaneous
  Country: PH (occurrence: PH)
  Receive Date: 20200818
  Receipt Date: 20200915
  Transmission Date: 20201103
  Serious: Yes (Death, Congenital Anomaly, Other)
  Sender: FDA-Public Use
  Company Number: PH-GLAXOSMITHKLINE-PH2020APC157522

PATIENT
  Sex: Male

DRUGS (16)
  1. ISONIAZID. [Suspect]
     Active Substance: ISONIAZID
     Indication: TUBERCULOSIS
     Dosage: UNK, 1D
     Route: 064
  2. PYRAZINAMIDE. [Suspect]
     Active Substance: PYRAZINAMIDE
     Indication: TUBERCULOSIS
     Dosage: UNK, 1D
     Route: 064
  3. METHYLDOPA. [Suspect]
     Active Substance: METHYLDOPA
     Indication: GESTATIONAL HYPERTENSION
     Dosage: 1 DF, TID
     Route: 064
  4. MICRONIZED PROGESTERONE [Suspect]
     Active Substance: PROGESTERONE
     Indication: TOCOLYSIS
     Dosage: UNK MG
     Route: 064
  5. CLARITHROMYCIN. [Suspect]
     Active Substance: CLARITHROMYCIN
     Indication: SYMPTOMATIC TREATMENT
     Dosage: UNK
     Route: 064
  6. ISOXSUPRINE [Suspect]
     Active Substance: ISOXSUPRINE
     Dosage: UNK
     Route: 064
  7. DEXAMETHASONE. [Suspect]
     Active Substance: DEXAMETHASONE
     Indication: PRODUCT USED FOR UNKNOWN INDICATION
     Dosage: 6 MG, BID (4 DOSES)
     Route: 064
  8. SALBUTAMOL [Suspect]
     Active Substance: ALBUTEROL
     Indication: PRODUCT USED FOR UNKNOWN INDICATION
     Dosage: UNK
     Route: 064
  9. URSODEOXYCHOLIC ACID [Suspect]
     Active Substance: URSODIOL
     Indication: PRODUCT USED FOR UNKNOWN INDICATION
     Dosage: 2 DF, BID (250MG/TAB 2 TABLETS 2X A DAY)
     Route: 064
  10. ISOXSUPRINE [Suspect]
     Active Substance: ISOXSUPRINE
     Indication: TOCOLYSIS
     Dosage: 1 DF, TID
     Route: 064
  11. PREDNISONE. [Suspect]
     Active Substance: PREDNISONE
     Indication: SYMPTOMATIC TREATMENT
     Dosage: UNK
     Route: 064
  12. ETHAMBUTOL [Suspect]
     Active Substance: ETHAMBUTOL HYDROCHLORIDE
     Indication: TUBERCULOSIS
     Dosage: UNK, 1D
     Route: 064
  13. TERBUTALINE [Suspect]
     Active Substance: TERBUTALINE
     Indication: PRODUCT USED FOR UNKNOWN INDICATION
     Dosage: UNK
     Route: 064
  14. RIFAMPICIN [Suspect]
     Active Substance: RIFAMPIN
     Indication: TUBERCULOSIS
     Dosage: UNK, 1D
     Route: 064
  15. MICONAZOLE. [Suspect]
     Active Substance: MICONAZOLE
     Indication: VULVOVAGINAL CANDIDIASIS
     Dosage: 1200 MG (VAGINAL SUPPOSITORY SINGLE DOSE)
     Route: 064
  16. MAGNESIUM SULFATE. [Suspect]
     Active Substance: MAGNESIUM SULFATE
     Indication: TOCOLYSIS
     Dosage: UNK
     Route: 064

REACTIONS (29)
  - Cardio-respiratory arrest [Fatal]
  - Congenital hepatomegaly [Unknown]
  - Lung disorder [Unknown]
  - Constipation neonatal [Unknown]
  - Hepatic mass [Unknown]
  - Pseudocyst [Unknown]
  - Right atrial dilatation [Unknown]
  - Liver disorder [Unknown]
  - Intestinal perforation [Unknown]
  - Gallbladder rupture [Unknown]
  - Cholecystitis [Unknown]
  - Sepsis [Fatal]
  - Congenital tuberculosis [Fatal]
  - Abdominal abscess [Unknown]
  - Congenital hydrocephalus [Unknown]
  - Cardiomegaly [Unknown]
  - Hepatitis [Unknown]
  - Gastrointestinal inflammation [Unknown]
  - Patent ductus arteriosus [Unknown]
  - Foetal exposure during pregnancy [Unknown]
  - Brachycephaly [Unknown]
  - Neonatal respiratory distress [Unknown]
  - Abdominal mass [Unknown]
  - Neonatal tachypnoea [Unknown]
  - Hepatosplenomegaly neonatal [Unknown]
  - Oxygen saturation decreased [Unknown]
  - Meconium peritonitis [Unknown]
  - Multiple organ dysfunction syndrome [Fatal]
  - Premature baby [Unknown]
